FAERS Safety Report 12997751 (Version 4)
Quarter: 2018Q2

REPORT INFORMATION
  Report Type: Report from Study
  Country: JP (occurrence: JP)
  Receive Date: 20161205
  Receipt Date: 20180529
  Transmission Date: 20180711
  Serious: Yes (Death, Life-Threatening, Hospitalization)
  Sender: FDA-Public Use
  Company Number: JP-PFIZER INC-2016554208

PATIENT
  Age: 84 Year
  Sex: Female
  Weight: 44 kg

DRUGS (2)
  1. XELJANZ [Suspect]
     Active Substance: TOFACITINIB CITRATE
     Indication: RHEUMATOID ARTHRITIS
     Dosage: 5 MG, 1X/DAY
     Route: 048
     Dates: start: 20160928, end: 20161021
  2. XELJANZ [Suspect]
     Active Substance: TOFACITINIB CITRATE
     Dosage: 5 MG, 1X/DAY
     Route: 048
     Dates: start: 20161123, end: 20170315

REACTIONS (5)
  - Condition aggravated [Fatal]
  - Fall [Recovering/Resolving]
  - Humerus fracture [Recovering/Resolving]
  - Shock haemorrhagic [Recovering/Resolving]
  - Hepatic cirrhosis [Fatal]

NARRATIVE: CASE EVENT DATE: 20160928
